FAERS Safety Report 22247108 (Version 1)
Quarter: 2023Q2

REPORT INFORMATION
  Report Type: Spontaneous
  Country: US (occurrence: US)
  Receive Date: 20230424
  Receipt Date: 20230424
  Transmission Date: 20230722
  Serious: No
  Sender: FDA-Public Use
  Company Number: US-009507513-2304USA007629

PATIENT
  Sex: Female

DRUGS (2)
  1. BELSOMRA [Suspect]
     Active Substance: SUVOREXANT
     Dosage: 15MG ONCE DAILY
     Route: 048
     Dates: start: 20230416, end: 20230416
  2. BELSOMRA [Suspect]
     Active Substance: SUVOREXANT
     Dosage: DOUBLED HER DOSE 15 MG ONCE DAILY
     Route: 048
     Dates: start: 20230417

REACTIONS (4)
  - Hypersomnia [Not Recovered/Not Resolved]
  - Drug ineffective [Unknown]
  - Intentional overdose [Unknown]
  - Incorrect dose administered [Unknown]

NARRATIVE: CASE EVENT DATE: 20230416
